FAERS Safety Report 20303414 (Version 1)
Quarter: 2022Q1

REPORT INFORMATION
  Report Type: Other
  Country: US (occurrence: US)
  Receive Date: 20220106
  Receipt Date: 20220106
  Transmission Date: 20220423
  Serious: Yes (Hospitalization)
  Sender: FDA-Public Use
  Company Number: US-HLS-202105725

PATIENT
  Age: 35 Year
  Sex: Male

DRUGS (10)
  1. CLOZAPINE [Suspect]
     Active Substance: CLOZAPINE
     Indication: Schizophrenia
     Dosage: THEN TITRATED UP TO 75MG, INCREASING THE DOSE BY 12.5 MG EVERY OTHER DAY, THEN TITRATED UP TO A?DOSE
     Route: 065
  2. QUETIAPINE [Concomitant]
     Active Substance: QUETIAPINE
     Indication: Agitation
     Dosage: 50 MG OF QUETIAPINE TWICE DAILY AS NEEDED THEN 50 MG OF QUETIAPINE AS NEEDED.
     Route: 065
  3. QUETIAPINE [Concomitant]
     Active Substance: QUETIAPINE
     Indication: Anxiety
     Dosage: 50 MG OF QUETIAPINE TWICE DAILY AS NEEDED THEN 50 MG OF QUETIAPINE AS NEEDED.
     Route: 065
  4. QUETIAPINE [Concomitant]
     Active Substance: QUETIAPINE
     Indication: Tachycardia
     Dosage: 50 MG OF QUETIAPINE TWICE DAILY AS NEEDED THEN 50 MG OF QUETIAPINE AS NEEDED.
     Route: 065
  5. QUETIAPINE [Concomitant]
     Active Substance: QUETIAPINE
     Indication: Agitation
     Dosage: 450 MG OF QUETIAPINE AT NIGHT, THEN GRADUALLY TAPERED AND DISCONTINUED.
     Route: 065
  6. QUETIAPINE [Concomitant]
     Active Substance: QUETIAPINE
     Indication: Anxiety
     Dosage: 450 MG OF QUETIAPINE AT NIGHT, THEN GRADUALLY TAPERED AND DISCONTINUED.
     Route: 065
  7. QUETIAPINE [Concomitant]
     Active Substance: QUETIAPINE
     Indication: Tachycardia
     Dosage: 450 MG OF QUETIAPINE AT NIGHT, THEN GRADUALLY TAPERED AND DISCONTINUED.
     Route: 065
  8. LORAZEPAM [Concomitant]
     Active Substance: LORAZEPAM
     Indication: Agitation
     Dosage: 3 TIMES A DAY,
     Route: 065
  9. LORAZEPAM [Concomitant]
     Active Substance: LORAZEPAM
     Indication: Anxiety
     Dosage: 3 TIMES A DAY,
     Route: 065
  10. LORAZEPAM [Concomitant]
     Active Substance: LORAZEPAM
     Indication: Tachycardia
     Dosage: 3 TIMES A DAY,
     Route: 065

REACTIONS (10)
  - Anxiety [Recovering/Resolving]
  - Apathy [Recovering/Resolving]
  - Hallucination, auditory [Recovering/Resolving]
  - Constipation [Recovering/Resolving]
  - Agitation [Recovering/Resolving]
  - Fatigue [Recovering/Resolving]
  - Obsessive thoughts [Recovering/Resolving]
  - Electrocardiogram QT prolonged [Recovering/Resolving]
  - Colon cancer [Unknown]
  - Tachycardia [Recovered/Resolved]
